FAERS Safety Report 14757619 (Version 2)
Quarter: 2018Q2

REPORT INFORMATION
  Report Type: Spontaneous
  Country: HR (occurrence: HR)
  Receive Date: 20180413
  Receipt Date: 20180422
  Transmission Date: 20180711
  Serious: Yes (Death, Hospitalization, Other)
  Sender: FDA-Public Use
  Company Number: HR-APOTEX-2018AP010013

PATIENT

DRUGS (9)
  1. HALOPERIDOL. [Interacting]
     Active Substance: HALOPERIDOL
     Indication: MENTAL DISORDER
     Dosage: 12 MG, 1D
     Route: 048
  2. DIAZEPAM. [Concomitant]
     Active Substance: DIAZEPAM
     Indication: SCHIZOPHRENIA
     Route: 048
  3. BIPERIDEN [Concomitant]
     Active Substance: BIPERIDEN
     Indication: MENTAL DISORDER
     Dosage: 6 MG, 1D
     Route: 048
  4. ALPRAZOLAM. [Concomitant]
     Active Substance: ALPRAZOLAM
     Indication: MENTAL DISORDER
     Dosage: 6 MG, 1D
     Route: 048
  5. FLUPHENAZINE HYDROCHLORIDE. [Interacting]
     Active Substance: FLUPHENAZINE HYDROCHLORIDE
     Indication: SCHIZOPHRENIA
     Dosage: 25 MG, Z
     Route: 030
  6. OLANZAPINE. [Interacting]
     Active Substance: OLANZAPINE
     Indication: SCHIZOPHRENIA
     Dosage: 30 MG, 1D
     Route: 048
  7. FLUPHENAZINE [Interacting]
     Active Substance: FLUPHENAZINE
     Indication: SCHIZOPHRENIA
     Dosage: 40 MG, 1D
     Route: 048
  8. BROMAZEPAM [Concomitant]
     Active Substance: BROMAZEPAM
     Indication: SCHIZOPHRENIA
     Dosage: 36 MG, 1D
     Route: 048
  9. PAROXETINE. [Suspect]
     Active Substance: PAROXETINE
     Route: 048

REACTIONS (22)
  - Brain oedema [Fatal]
  - Loss of consciousness [Fatal]
  - Papilloedema [Unknown]
  - Vertigo [Unknown]
  - Nausea [Unknown]
  - Hyponatraemia [Fatal]
  - Abdominal pain [Unknown]
  - Bradypnoea [Unknown]
  - Drug interaction [Unknown]
  - Cardiac arrest [Fatal]
  - Hypoglycaemia [Unknown]
  - Pancreatitis haemorrhagic [Fatal]
  - Disorientation [Unknown]
  - Hyperglycaemia [Unknown]
  - Inappropriate antidiuretic hormone secretion [Fatal]
  - Coma [Unknown]
  - Amylase increased [Unknown]
  - Hypotension [Unknown]
  - Fatigue [None]
  - Endotracheal intubation [Unknown]
  - Hypopnoea [Unknown]
  - Ketonuria [Unknown]
